FAERS Safety Report 5536919-8 (Version None)
Quarter: 2007Q4

REPORT INFORMATION
  Report Type: 
  Country: None (occurrence: None)
  Receive Date: 20071207
  Receipt Date: 20071205
  Transmission Date: 20080405
  Serious: Yes (Life-Threatening, Hospitalization, Disabling, Other)
  Sender: FDA-Public Use
  Company Number: PHRM2007FR02582

PATIENT
  Age: 74 Year
  Sex: Male
  Weight: 76 kg

DRUGS (6)
  1. PROPOFAN [Concomitant]
  2. PARACETAMOL [Concomitant]
  3. ROCGEL [Concomitant]
  4. PERIDYS [Concomitant]
  5. EXFORGE [Suspect]
     Indication: HYPERTENSION
     Dosage: 1 DF, QD
     Route: 048
     Dates: start: 20070928, end: 20071016
  6. ALLOPURINOL [Concomitant]
     Dosage: 100 MG, QD
     Dates: start: 20020128, end: 20071016

REACTIONS (3)
  - ACUTE CORONARY SYNDROME [None]
  - CORONARY ANGIOPLASTY [None]
  - CORONARY ARTERY THROMBOSIS [None]
